FAERS Safety Report 8071699-6 (Version None)
Quarter: 2012Q1

REPORT INFORMATION
  Report Type: 
  Country: None (occurrence: None)
  Receive Date: 20120125
  Receipt Date: 20120124
  Transmission Date: 20120608
  Serious: Yes (Other)
  Sender: FDA-Public Use
  Company Number: US-TEVA-318955USA

PATIENT
  Sex: Female

DRUGS (4)
  1. METFORMIN HCL [Concomitant]
     Indication: INSULIN RESISTANCE
  2. PROAIR HFA [Suspect]
     Indication: ASTHMA
     Route: 055
     Dates: start: 20110801
  3. LEVOXYL [Concomitant]
     Indication: HYPOTHYROIDISM
  4. FLONASE [Concomitant]
     Indication: HYPERSENSITIVITY

REACTIONS (3)
  - DYSPNOEA [None]
  - PALPITATIONS [None]
  - ANAPHYLACTIC REACTION [None]
